FAERS Safety Report 7891776-X (Version None)
Quarter: 2011Q4

REPORT INFORMATION
  Report Type: 
  Country: None (occurrence: None)
  Receive Date: 20111103
  Receipt Date: 20110810
  Transmission Date: 20120403
  Serious: No
  Sender: FDA-Public Use
  Company Number: US-AMGEN-USASP2011040503

PATIENT
  Age: 44 Year
  Weight: 81.633 kg

DRUGS (7)
  1. ATENOLOL [Concomitant]
     Dosage: 25 MG, UNK
  2. ENBREL [Suspect]
     Indication: PRODUCT USED FOR UNKNOWN INDICATION
     Dosage: 50 MG, QWK
     Route: 058
  3. FOLIC ACID [Concomitant]
     Dosage: 1 MG, UNK
  4. LEVOXYL [Concomitant]
     Dosage: 25 MUG, UNK
  5. STRESSTABS                         /00512101/ [Concomitant]
  6. VITAMIN D [Concomitant]
  7. HYDROCHLOROTH [Concomitant]
     Dosage: 12.5 MG, UNK

REACTIONS (2)
  - INJECTION SITE ERYTHEMA [None]
  - INJECTION SITE PRURITUS [None]
